FAERS Safety Report 21067105 (Version 11)
Quarter: 2023Q2

REPORT INFORMATION
  Report Type: Spontaneous
  Country: CA (occurrence: CA)
  Receive Date: 20220712
  Receipt Date: 20230621
  Transmission Date: 20230721
  Serious: Yes (Hospitalization, Other)
  Sender: FDA-Public Use
  Company Number: CA-CELLTRION INC.-2021CA016702

PATIENT

DRUGS (7)
  1. INFLECTRA [Suspect]
     Active Substance: INFLIXIMAB-DYYB
     Indication: Crohn^s disease
     Dosage: 700 MG, 0, 2, 6, THEN EVERY 8 WEEKS (WEEK 0 DOSE AT HOSPITAL)
     Route: 042
     Dates: start: 202107, end: 20211115
  2. INFLECTRA [Suspect]
     Active Substance: INFLIXIMAB-DYYB
     Dosage: 700 MG, EVERY 6 WEEKS
     Route: 042
     Dates: start: 20220110
  3. INFLECTRA [Suspect]
     Active Substance: INFLIXIMAB-DYYB
     Dosage: 700 MG, EVERY 6 WEEKS
     Route: 042
     Dates: start: 20220222
  4. INFLECTRA [Suspect]
     Active Substance: INFLIXIMAB-DYYB
     Dosage: 700 MG, EVEY 6 WEEKS
     Route: 042
     Dates: start: 20220416
  5. INFLECTRA [Suspect]
     Active Substance: INFLIXIMAB-DYYB
     Dosage: 700 MG, EVEY 6 WEEKS
     Route: 042
     Dates: start: 20221012
  6. INFLECTRA [Suspect]
     Active Substance: INFLIXIMAB-DYYB
     Dosage: 700 MG, EVEY 6 WEEKS
     Route: 042
     Dates: start: 20230403
  7. INFLECTRA [Suspect]
     Active Substance: INFLIXIMAB-DYYB
     Dosage: 700 MG EVERY 6 WEEKS
     Route: 042
     Dates: start: 20230520

REACTIONS (19)
  - Infection [Unknown]
  - Kidney infection [Recovering/Resolving]
  - Haematological infection [Recovering/Resolving]
  - Loss of therapeutic response [Unknown]
  - Condition aggravated [Not Recovered/Not Resolved]
  - Illness [Recovering/Resolving]
  - COVID-19 [Recovered/Resolved]
  - Bronchitis [Unknown]
  - Aphonia [Unknown]
  - Respiratory symptom [Not Recovered/Not Resolved]
  - Productive cough [Not Recovered/Not Resolved]
  - Vision blurred [Recovered/Resolved]
  - Vitreous floaters [Recovered/Resolved]
  - Hordeolum [Not Recovered/Not Resolved]
  - Psoriasis [Not Recovered/Not Resolved]
  - Pain [Not Recovered/Not Resolved]
  - Off label use [Unknown]
  - Off label use [Unknown]
  - Intentional product use issue [Unknown]

NARRATIVE: CASE EVENT DATE: 20210101
